FAERS Safety Report 7944491-8 (Version None)
Quarter: 2011Q4

REPORT INFORMATION
  Report Type: 
  Country: None (occurrence: None)
  Receive Date: 20111122
  Receipt Date: 20110721
  Transmission Date: 20120403
  Serious: No
  Sender: FDA-Public Use
  Company Number: PHHY2011US66220

PATIENT
  Age: 47 Year
  Sex: Female

DRUGS (1)
  1. GILENYA [Suspect]
     Indication: MULTIPLE SCLEROSIS
     Dosage: 0.5 MG, ONE DAILY, ORAL
     Route: 048
     Dates: start: 20110207, end: 20110701

REACTIONS (4)
  - ASTHENIA [None]
  - GAIT DISTURBANCE [None]
  - SKIN ULCER [None]
  - WOUND SECRETION [None]
